FAERS Safety Report 4504562-5 (Version None)
Quarter: 2004Q4

REPORT INFORMATION
  Report Type: 
  Country: None (occurrence: None)
  Receive Date: 20041118
  Receipt Date: 20041029
  Transmission Date: 20050328
  Serious: Yes (Other)
  Sender: FDA-Public Use
  Company Number: PHEH2004US11716

PATIENT
  Age: 77 Year
  Sex: Female
  Weight: 155 kg

DRUGS (1)
  1. GLEEVEC [Suspect]
     Indication: CHRONIC MYELOID LEUKAEMIA
     Dosage: 4 TABLETS PER DAY
     Route: 048
     Dates: start: 20010101

REACTIONS (2)
  - BREAST CANCER [None]
  - MASTECTOMY [None]
